FAERS Safety Report 10553765 (Version 1)
Quarter: 2014Q4

REPORT INFORMATION
  Report Type: Spontaneous
  Country: US (occurrence: None)
  Receive Date: 20141028
  Receipt Date: 20141028
  Transmission Date: 20150529
  Serious: Yes (Death)
  Sender: FDA-Public Use
  Company Number: IPC201410-000562

PATIENT
  Age: 65 Year
  Sex: Male

DRUGS (4)
  1. FUROSEMIDE (FUROSEMIDE) (FUROSEMIDE) [Suspect]
     Active Substance: FUROSEMIDE
  2. METHOTREXATE (METHOTREXATE) (METHOTREXATE) [Suspect]
     Active Substance: METHOTREXATE
  3. MELOXICAM (MELOXICAM) (MELOXICAM) [Suspect]
     Active Substance: MELOXICAM
  4. OMEPRAZOLE (OMEPRAZOLE) (OMEPRAZOLE) [Suspect]
     Active Substance: OMEPRAZOLE

REACTIONS (9)
  - Metaplasia [None]
  - Pancytopenia [None]
  - Skin erosion [None]
  - Blister [None]
  - Parakeratosis [None]
  - Blood creatinine increased [None]
  - Blood urea increased [None]
  - Toxicity to various agents [None]
  - Drug interaction [None]
